FAERS Safety Report 6703798-2 (Version None)
Quarter: 2010Q2

REPORT INFORMATION
  Report Type: 
  Country: None (occurrence: None)
  Receive Date: 20100430
  Receipt Date: 20100426
  Transmission Date: 20101027
  Serious: Yes (Other)
  Sender: FDA-Public Use
  Company Number: JP-SANOFI-AVENTIS-2010SA023842

PATIENT
  Age: 46 Year
  Sex: Female

DRUGS (1)
  1. LASIX [Suspect]
     Indication: DRUG USE FOR UNKNOWN INDICATION

REACTIONS (4)
  - CATARACT [None]
  - INTRAOCULAR PRESSURE INCREASED [None]
  - PIGMENTATION DISORDER [None]
  - RETINAL HAEMORRHAGE [None]
